FAERS Safety Report 19711179 (Version 1)
Quarter: 2021Q3

REPORT INFORMATION
  Report Type: Spontaneous
  Country: TR (occurrence: TR)
  Receive Date: 20210816
  Receipt Date: 20210816
  Transmission Date: 20211014
  Serious: No
  Sender: FDA-Public Use
  Company Number: TR-LUPIN PHARMACEUTICALS INC.-2021-14627

PATIENT
  Age: 24 Year
  Sex: Female
  Weight: 78 kg

DRUGS (5)
  1. PARACETAMOL [Suspect]
     Active Substance: ACETAMINOPHEN
     Indication: ANALGESIC THERAPY
     Dosage: 500 MILLIGRAM, PRN (3 X 500 MG AS REQUIRED)
     Route: 065
  2. CALCIUM [Suspect]
     Active Substance: CALCIUM
     Indication: STRESS FRACTURE
     Dosage: UNK
     Route: 048
  3. CALCIUM [Suspect]
     Active Substance: CALCIUM
     Indication: FRACTURED SACRUM
  4. VITAMIN D [Suspect]
     Active Substance: VITAMIN D NOS
     Indication: STRESS FRACTURE
     Dosage: UNK
     Route: 065
  5. VITAMIN D [Suspect]
     Active Substance: VITAMIN D NOS
     Indication: FRACTURED SACRUM

REACTIONS (1)
  - Maternal exposure during breast feeding [Unknown]
